FAERS Safety Report 9217425 (Version 1)
Quarter: 2013Q2

REPORT INFORMATION
  Report Type: Spontaneous
  Country: US (occurrence: None)
  Receive Date: 20130405
  Receipt Date: 20130405
  Transmission Date: 20140414
  Serious: Yes (Hospitalization)
  Sender: FDA-Public Use
  Company Number: None

PATIENT
  Age: 81 Year
  Sex: Male
  Weight: 72.7 kg

DRUGS (1)
  1. DIGOXIN [Suspect]
     Dosage: MG PO
     Route: 048
     Dates: start: 20130208

REACTIONS (5)
  - Toxicity to various agents [None]
  - Renal failure [None]
  - Nausea [None]
  - Vomiting [None]
  - Bradycardia [None]
